FAERS Safety Report 5678997-1 (Version None)
Quarter: 2008Q1

REPORT INFORMATION
  Report Type: 
  Country: None (occurrence: None)
  Receive Date: 20080325
  Receipt Date: 20080318
  Transmission Date: 20080703
  Serious: Yes (Death, Hospitalization)
  Sender: FDA-Public Use
  Company Number: A0716200A

PATIENT
  Age: 84 Year
  Sex: Male

DRUGS (2)
  1. VALTREX [Suspect]
     Dosage: 1G THREE TIMES PER DAY
     Route: 048
     Dates: start: 20080208, end: 20080210
  2. PAIN MEDICATION [Concomitant]

REACTIONS (2)
  - ARTERIOSCLEROSIS [None]
  - CARDIAC DISORDER [None]
